FAERS Safety Report 23937553 (Version 1)
Quarter: 2024Q2

REPORT INFORMATION
  Report Type: Spontaneous
  Country: PT (occurrence: PT)
  Receive Date: 20240604
  Receipt Date: 20240604
  Transmission Date: 20240716
  Serious: Yes (Other)
  Sender: FDA-Public Use
  Company Number: PT-PIRAMAL PHARMA LIMITED-2024-PPL-000380

PATIENT
  Age: 75 Year
  Sex: Male

DRUGS (4)
  1. ROPIVACAINE [Suspect]
     Active Substance: ROPIVACAINE
     Indication: Anaesthesia
     Dosage: SEVERAL 0.2% ROPIVACAINE BOLUSES
     Route: 008
  2. ROPIVACAINE [Suspect]
     Active Substance: ROPIVACAINE
     Dosage: PERFUSION OF 0.15% ROPIVACAINE AND SUFENTANIL
     Route: 008
  3. LIDOCAINE [Suspect]
     Active Substance: LIDOCAINE
     Indication: Anaesthesia
     Dosage: 2 PERCENT
     Route: 008
  4. SUFENTANIL [Suspect]
     Active Substance: SUFENTANIL
     Indication: Anaesthesia
     Dosage: PERFUSION OF 0.15% ROPIVACAINE AND SUFENTANIL
     Route: 008

REACTIONS (1)
  - Diplegia [Unknown]
